FAERS Safety Report 20655873 (Version 1)
Quarter: 2022Q1

REPORT INFORMATION
  Report Type: Spontaneous
  Country: US (occurrence: US)
  Receive Date: 20220330
  Receipt Date: 20220330
  Transmission Date: 20220424
  Serious: No
  Sender: FDA-Public Use
  Company Number: US-TEVA-2022-US-2014290

PATIENT
  Age: 23 Year
  Sex: Female

DRUGS (2)
  1. ARMONAIR DIGIHALER [Suspect]
     Active Substance: FLUTICASONE PROPIONATE
     Indication: Asthma prophylaxis
     Route: 065
  2. ARMONAIR DIGIHALER [Suspect]
     Active Substance: FLUTICASONE PROPIONATE

REACTIONS (2)
  - Oropharyngeal pain [Recovered/Resolved]
  - Wrong technique in device usage process [Unknown]
